FAERS Safety Report 6277140-8 (Version None)
Quarter: 2009Q3

REPORT INFORMATION
  Report Type: 
  Country: None (occurrence: None)
  Receive Date: 20090722
  Receipt Date: 20090120
  Transmission Date: 20100115
  Serious: No
  Sender: FDA-Public Use
  Company Number: US-BRISTOL-MYERS SQUIBB COMPANY-14478267

PATIENT
  Age: 58 Year
  Sex: Male

DRUGS (3)
  1. COUMADIN [Suspect]
     Dates: start: 20081125, end: 20080101
  2. LOVENOX [Suspect]
     Indication: DEEP VEIN THROMBOSIS
     Route: 058
     Dates: start: 20081125, end: 20080101
  3. ISOPHANE INSULIN HUMAN [Concomitant]

REACTIONS (3)
  - HYPERSENSITIVITY [None]
  - OEDEMA PERIPHERAL [None]
  - RASH ERYTHEMATOUS [None]
